FAERS Safety Report 7756374-7 (Version None)
Quarter: 2011Q3

REPORT INFORMATION
  Report Type: 
  Country: None (occurrence: None)
  Receive Date: 20110915
  Receipt Date: 20110915
  Transmission Date: 20111222
  Serious: No
  Sender: FDA-Public Use
  Company Number: None

PATIENT
  Sex: Female

DRUGS (1)
  1. XELODA [Suspect]
     Indication: GASTROINTESTINAL DISORDER
     Dosage: 500 MG PO( TAKE 2000 MG (4  TABLETS) BY MOUTH  TWICE DAILKY FOR 7 DAYS EVRY 14 DAYS
     Route: 048

REACTIONS (1)
  - DIARRHOEA [None]
